FAERS Safety Report 10840049 (Version 1)
Quarter: 2015Q1

REPORT INFORMATION
  Report Type: Report from Study
  Country: US (occurrence: US)
  Receive Date: 20150220
  Receipt Date: 20150220
  Transmission Date: 20150721
  Serious: No
  Sender: FDA-Public Use
  Company Number: US-ABBVIE-14P-163-1245506-00

PATIENT
  Sex: Male
  Weight: 87.62 kg

DRUGS (1)
  1. HUMIRA [Suspect]
     Active Substance: ADALIMUMAB
     Indication: CROHN^S DISEASE
     Route: 058
     Dates: start: 201309

REACTIONS (3)
  - Gastrointestinal pain [Recovered/Resolved]
  - Abdominal pain [Not Recovered/Not Resolved]
  - Intestinal stenosis [Recovered/Resolved]
